FAERS Safety Report 9516140 (Version 1)
Quarter: 2013Q3

REPORT INFORMATION
  Report Type: Spontaneous
  Country: CN (occurrence: CN)
  Receive Date: 20130911
  Receipt Date: 20130911
  Transmission Date: 20140515
  Serious: Yes (Life-Threatening)
  Sender: FDA-Public Use
  Company Number: CN-CELGENEUS-035-21660-13090875

PATIENT
  Age: 61 Year
  Sex: Male

DRUGS (2)
  1. ABRAXANE [Suspect]
     Indication: LUNG NEOPLASM MALIGNANT
     Route: 041
     Dates: start: 20130905, end: 20130905
  2. CISPLATIN [Concomitant]
     Indication: LUNG NEOPLASM MALIGNANT
     Route: 065
     Dates: start: 20130905, end: 20130905

REACTIONS (2)
  - Pulmonary oedema [Not Recovered/Not Resolved]
  - Brain oedema [Not Recovered/Not Resolved]
